FAERS Safety Report 8987223 (Version 2)
Quarter: 2014Q1

REPORT INFORMATION
  Report Type: Spontaneous
  Country: US (occurrence: US)
  Receive Date: 20121227
  Receipt Date: 20140116
  Transmission Date: 20141002
  Serious: Yes (Hospitalization, Other)
  Sender: FDA-Public Use
  Company Number: US-BAYER-2012-135311

PATIENT
  Age: 20 Year
  Sex: Female

DRUGS (8)
  1. YAZ [Suspect]
     Dosage: UNK
     Dates: start: 201009, end: 201101
  2. YASMIN [Suspect]
     Dosage: UNK
     Dates: start: 201009, end: 201101
  3. OCELLA [Suspect]
     Dosage: UNK
     Dates: start: 201009, end: 201101
  4. BEYAZ [Suspect]
     Dosage: UNK
     Dates: start: 201009, end: 201101
  5. KETOROLAC [Concomitant]
     Indication: DISCOMFORT
  6. ADVIL [Concomitant]
     Dosage: 600 MG UP TO 3 TO 4 TIMES PER DAY
  7. CEPHALEXIN [Concomitant]
     Dosage: 500 MG CAPSULES, 30 DISPENSED
  8. DIFLUNISAL [Concomitant]
     Dosage: 500 MG TABLETS, 20 DISPENSED

REACTIONS (8)
  - Cholecystectomy [None]
  - Biliary dyskinesia [None]
  - Cholecystitis acute [None]
  - Injury [None]
  - Pain [None]
  - Emotional distress [None]
  - Anxiety [None]
  - Psychological trauma [None]
